FAERS Safety Report 6446155-9 (Version None)
Quarter: 2009Q4

REPORT INFORMATION
  Report Type: 
  Country: None (occurrence: None)
  Receive Date: 20091119
  Receipt Date: 20091019
  Transmission Date: 20100525
  Serious: No
  Sender: FDA-Public Use
  Company Number: US-BAYER-200936953NA

PATIENT
  Age: 19 Year
  Sex: Female
  Weight: 65 kg

DRUGS (1)
  1. MIRENA [Suspect]
     Indication: CONTRACEPTION
     Dosage: CONTINUOUS
     Route: 015
     Dates: start: 20090101

REACTIONS (7)
  - ABDOMINAL PAIN UPPER [None]
  - AMENORRHOEA [None]
  - DYSPAREUNIA [None]
  - HEADACHE [None]
  - INFECTION [None]
  - MEDICAL DEVICE COMPLICATION [None]
  - MENSTRUATION IRREGULAR [None]
